FAERS Safety Report 15489218 (Version 1)
Quarter: 2018Q4

REPORT INFORMATION
  Report Type: Spontaneous
  Country: US (occurrence: US)
  Receive Date: 20181004
  Receipt Date: 20181004
  Transmission Date: 20190205
  Serious: Yes (Hospitalization, Disabling)
  Sender: FDA-Public Use
  Company Number: None

PATIENT
  Age: 61 Year
  Sex: Male

DRUGS (14)
  1. TOBRAMYCIN 0.3% [Concomitant]
  2. CREON 36000UNITS [Concomitant]
  3. GABAPENTIN 300MG [Concomitant]
     Active Substance: GABAPENTIN
  4. MEROPENEM 1GM [Concomitant]
  5. PULMICORT 180MCG [Concomitant]
  6. FLOVENT [Concomitant]
     Active Substance: FLUTICASONE PROPIONATE
  7. SYMDEKO [Suspect]
     Active Substance: IVACAFTOR\TEZACAFTOR
     Indication: CYSTIC FIBROSIS
     Dosage: ?          OTHER FREQUENCY:100/150 AM +100 PM;?
     Route: 048
     Dates: start: 20180411
  8. COMBIVENT [Concomitant]
     Active Substance: ALBUTEROL SULFATE\IPRATROPIUM BROMIDE
  9. SYMBICORT 160-4.5 [Concomitant]
  10. VANCOMY/NACL 1/250ML [Concomitant]
  11. PULMOZYME [Suspect]
     Active Substance: DORNASE ALFA
     Indication: CYSTIC FIBROSIS
     Route: 048
     Dates: start: 20160123
  12. ALBUTEROL 2MG [Concomitant]
  13. HYPERSAL 7% [Concomitant]
  14. KALYDECO [Concomitant]
     Active Substance: IVACAFTOR

REACTIONS (1)
  - Total lung capacity decreased [None]

NARRATIVE: CASE EVENT DATE: 20180920
